FAERS Safety Report 7109812-7 (Version None)
Quarter: 2010Q4

REPORT INFORMATION
  Report Type: 
  Country: None (occurrence: None)
  Receive Date: 20101118
  Receipt Date: 20101108
  Transmission Date: 20110411
  Serious: Yes (Hospitalization)
  Sender: FDA-Public Use
  Company Number: FR-ASTRAZENECA-2010SE10936

PATIENT
  Age: 57 Year
  Sex: Male
  Weight: 82 kg

DRUGS (8)
  1. CRESTOR [Suspect]
     Indication: DYSLIPIDAEMIA
     Route: 048
     Dates: end: 20100130
  2. EZETROL [Concomitant]
     Route: 048
     Dates: start: 20091203, end: 20100110
  3. APROVEL [Concomitant]
     Route: 065
  4. UN-ALPHA [Concomitant]
     Route: 065
  5. KARDEGIC [Concomitant]
     Route: 065
  6. CARDENSIEL [Concomitant]
     Route: 065
  7. LASIX [Concomitant]
     Route: 065
  8. ENALAPRIL MALEATE [Concomitant]
     Route: 065

REACTIONS (1)
  - DERMATOMYOSITIS [None]
